FAERS Safety Report 7365116-9 (Version None)
Quarter: 2011Q1

REPORT INFORMATION
  Report Type: 
  Country: None (occurrence: None)
  Receive Date: 20110321
  Receipt Date: 20110317
  Transmission Date: 20110831
  Serious: No
  Sender: FDA-Public Use
  Company Number: US-PFIZER INC-2011059850

PATIENT
  Sex: Female
  Weight: 75.283 kg

DRUGS (1)
  1. LYRICA [Suspect]
     Indication: FIBROMYALGIA
     Dosage: 75 MG, 2X/DAY
     Route: 048
     Dates: start: 20110101

REACTIONS (7)
  - HEADACHE [None]
  - DRUG WITHDRAWAL SYNDROME [None]
  - ABDOMINAL DISCOMFORT [None]
  - NAUSEA [None]
  - INSOMNIA [None]
  - DECREASED APPETITE [None]
  - DIARRHOEA [None]
